FAERS Safety Report 8224768-1 (Version None)
Quarter: 2012Q1

REPORT INFORMATION
  Report Type: 
  Country: None (occurrence: None)
  Receive Date: 20120321
  Receipt Date: 20120314
  Transmission Date: 20120608
  Serious: Yes (Hospitalization)
  Sender: FDA-Public Use
  Company Number: PHHY2012FR023286

PATIENT
  Age: 82 Year
  Sex: Female
  Weight: 64 kg

DRUGS (5)
  1. ASPIRIN [Concomitant]
     Dates: start: 20110101
  2. ZOLEDRONOC ACID [Suspect]
     Indication: OSTEOPOROSIS
     Dosage: UNK UKN, UNK
     Route: 042
     Dates: start: 20110615
  3. POLY-KARAYA [Concomitant]
     Dosage: UNK
     Dates: start: 20000101, end: 20110101
  4. PERINDOPRIL ERBUMINE [Concomitant]
     Dosage: UNK
     Dates: start: 20110101, end: 20120101
  5. INDAPAMIDE [Concomitant]
     Dosage: UNK
     Dates: start: 20110101, end: 20120101

REACTIONS (3)
  - OESOPHAGITIS [None]
  - ULCER [None]
  - GASTROOESOPHAGEAL REFLUX DISEASE [None]
